FAERS Safety Report 10191000 (Version 1)
Quarter: 2014Q2

REPORT INFORMATION
  Report Type: Spontaneous
  Country: US (occurrence: US)
  Receive Date: 20140523
  Receipt Date: 20140523
  Transmission Date: 20141212
  Serious: Yes (Other)
  Sender: FDA-Public Use
  Company Number: US-JNJFOC-20140510125

PATIENT
  Age: 43 Year
  Sex: Female
  Weight: 72.58 kg

DRUGS (1)
  1. XARELTO [Suspect]
     Indication: THROMBOSIS IN DEVICE
     Route: 048
     Dates: start: 20140227

REACTIONS (2)
  - Cognitive disorder [Not Recovered/Not Resolved]
  - Drug dose omission [Unknown]
